FAERS Safety Report 24728434 (Version 1)
Quarter: 2024Q4

REPORT INFORMATION
  Report Type: Spontaneous
  Country: CN (occurrence: CN)
  Receive Date: 20241212
  Receipt Date: 20241212
  Transmission Date: 20250115
  Serious: Yes (Other)
  Sender: PFIZER
  Company Number: CN-PFIZER INC-PV202400160146

PATIENT
  Age: 41 Year
  Sex: Male

DRUGS (1)
  1. METHYLPREDNISOLONE SODIUM SUCCINATE [Suspect]
     Active Substance: METHYLPREDNISOLONE SODIUM SUCCINATE
     Indication: Intervertebral disc protrusion
     Dosage: 80 MG, 1X/DAY
     Route: 041
     Dates: start: 20241128, end: 20241128

REACTIONS (2)
  - Blood potassium decreased [Recovering/Resolving]
  - Familial periodic paralysis [Recovering/Resolving]

NARRATIVE: CASE EVENT DATE: 20241128
